FAERS Safety Report 5391625-8 (Version None)
Quarter: 2007Q3

REPORT INFORMATION
  Report Type: 
  Country: None (occurrence: None)
  Receive Date: 20070717
  Receipt Date: 20070615
  Transmission Date: 20080115
  Serious: Yes (Other)
  Sender: FDA-Public Use
  Company Number: ENC200700086

PATIENT
  Weight: 0.9 kg

DRUGS (1)
  1. ARGATROBAN [Suspect]
     Dosage: TRANSPLACENTAL
     Route: 064
     Dates: start: 20060401, end: 20061006

REACTIONS (3)
  - DRUG EXPOSURE DURING PREGNANCY [None]
  - PREMATURE BABY [None]
  - SMALL FOR DATES BABY [None]
